FAERS Safety Report 13823367 (Version 2)
Quarter: 2017Q3

REPORT INFORMATION
  Report Type: Spontaneous
  Country: CN (occurrence: CN)
  Receive Date: 20170802
  Receipt Date: 20170817
  Transmission Date: 20171127
  Serious: Yes (Life-Threatening)
  Sender: FDA-Public Use
  Company Number: CN-ASTRAZENECA-2017SE77759

PATIENT

DRUGS (7)
  1. PULMICORT RESPULES [Suspect]
     Active Substance: BUDESONIDE
     Indication: RESPIRATORY TRACT OEDEMA
     Route: 055
     Dates: start: 20170720
  2. PULMICORT RESPULES [Suspect]
     Active Substance: BUDESONIDE
     Indication: OBSTRUCTIVE AIRWAYS DISORDER
     Route: 055
     Dates: start: 20170720
  3. BRICANYL [Suspect]
     Active Substance: TERBUTALINE SULFATE
     Indication: OBSTRUCTIVE AIRWAYS DISORDER
     Route: 055
     Dates: start: 20170720
  4. FLUID INFUSION [Concomitant]
  5. BRICANYL [Suspect]
     Active Substance: TERBUTALINE SULFATE
     Indication: RESPIRATORY TRACT OEDEMA
     Route: 055
     Dates: start: 20170720
  6. BRICANYL [Suspect]
     Active Substance: TERBUTALINE SULFATE
     Indication: INFLAMMATION
     Route: 055
     Dates: start: 20170720
  7. PULMICORT RESPULES [Suspect]
     Active Substance: BUDESONIDE
     Indication: INFLAMMATION
     Route: 055
     Dates: start: 20170720

REACTIONS (2)
  - Blood pressure decreased [Unknown]
  - Anaphylactic shock [Recovered/Resolved]

NARRATIVE: CASE EVENT DATE: 20170720
